FAERS Safety Report 4333634-3 (Version None)
Quarter: 2004Q2

REPORT INFORMATION
  Report Type: 
  Country: None (occurrence: None)
  Receive Date: 20040405
  Receipt Date: 20040405
  Transmission Date: 20050107
  Serious: Yes (Other)
  Sender: FDA-Public Use
  Company Number: None

PATIENT
  Age: 38 Year
  Sex: Female
  Weight: 63.9572 kg

DRUGS (1)
  1. CHORIONIC GONADOTROPIN [Suspect]
     Dosage: 10, 000 U SQ X 1
     Route: 058
     Dates: start: 20040202

REACTIONS (1)
  - DRUG EFFECT DECREASED [None]
